FAERS Safety Report 17036875 (Version 1)
Quarter: 2019Q4

REPORT INFORMATION
  Report Type: Report from Study
  Country: US (occurrence: US)
  Receive Date: 20191115
  Receipt Date: 20191115
  Transmission Date: 20200122
  Serious: Yes (Hospitalization, Other)
  Sender: FDA-Public Use
  Company Number: US-PFIZER INC-2019492208

PATIENT
  Age: 62 Year
  Sex: Female

DRUGS (1)
  1. IBRANCE [Suspect]
     Active Substance: PALBOCICLIB
     Indication: BREAST CANCER
     Dosage: 75 MG, 1X/DAY
     Route: 048
     Dates: start: 201909, end: 201910

REACTIONS (9)
  - Delirium [Unknown]
  - Mental impairment [Recovering/Resolving]
  - Vomiting [Recovering/Resolving]
  - Pneumonia [Unknown]
  - Cough [Unknown]
  - Confusional state [Unknown]
  - Nausea [Recovering/Resolving]
  - Neutropenia [Unknown]
  - Sepsis [Unknown]

NARRATIVE: CASE EVENT DATE: 2019
